FAERS Safety Report 13824769 (Version 1)
Quarter: 2017Q3

REPORT INFORMATION
  Report Type: Spontaneous
  Country: US (occurrence: US)
  Receive Date: 20170801
  Receipt Date: 20170801
  Transmission Date: 20171127
  Serious: Yes (Other)
  Sender: FDA-Public Use
  Company Number: None

PATIENT
  Sex: Female
  Weight: 52.16 kg

DRUGS (2)
  1. FORTEO [Suspect]
     Active Substance: TERIPARATIDE
     Indication: LOWER LIMB FRACTURE
     Route: 058
     Dates: start: 201611
  2. FORTEO [Suspect]
     Active Substance: TERIPARATIDE
     Indication: TRAUMATIC FRACTURE
     Route: 058
     Dates: start: 201611

REACTIONS (1)
  - Fracture [None]
